FAERS Safety Report 6410845-4 (Version None)
Quarter: 2009Q4

REPORT INFORMATION
  Report Type: 
  Country: None (occurrence: None)
  Receive Date: 20091022
  Receipt Date: 20091012
  Transmission Date: 20100525
  Serious: Yes (Other)
  Sender: FDA-Public Use
  Company Number: PHHY2009RO44000

PATIENT
  Sex: Female

DRUGS (4)
  1. ZOMETA [Suspect]
     Indication: SPINAL CORD COMPRESSION
     Dosage: 4MG /5 ML PER MONTH
  2. THALIDOMIDE [Concomitant]
     Indication: HAEMATOPOIETIC STEM CELL MOBILISATION
  3. CYCLOPHOSPHAMIDE [Concomitant]
     Indication: HAEMATOPOIETIC STEM CELL MOBILISATION
  4. DEXAMETHASONE [Concomitant]
     Indication: HAEMATOPOIETIC STEM CELL MOBILISATION

REACTIONS (1)
  - OSTEONECROSIS [None]
